FAERS Safety Report 12765550 (Version 1)
Quarter: 2016Q3

REPORT INFORMATION
  Report Type: Spontaneous
  Country: US (occurrence: US)
  Receive Date: 20160920
  Receipt Date: 20160920
  Transmission Date: 20161109
  Serious: Yes (Hospitalization)
  Sender: FDA-Public Use
  Company Number: None

PATIENT
  Age: 35 Year
  Sex: Female

DRUGS (1)
  1. HYOSCYAMINE. [Suspect]
     Active Substance: HYOSCYAMINE
     Dosage: 0.125 MG 1 TABLET TID TO QID ORALLY
     Route: 048
     Dates: start: 20160722, end: 20160909

REACTIONS (3)
  - Vision blurred [None]
  - Aptyalism [None]
  - Dysphagia [None]
